FAERS Safety Report 5701806-9 (Version None)
Quarter: 2008Q2

REPORT INFORMATION
  Report Type: 
  Country: None (occurrence: None)
  Receive Date: 20080410
  Receipt Date: 20080410
  Transmission Date: 20081010
  Serious: Yes (Hospitalization)
  Sender: FDA-Public Use
  Company Number: None

PATIENT
  Sex: Male
  Weight: 52.6173 kg

DRUGS (1)
  1. SINGULAIR [Suspect]
     Dosage: ONE TABLET DAILY BY MOUTH
     Route: 048
     Dates: start: 19990101

REACTIONS (3)
  - ANXIETY [None]
  - DEPRESSION [None]
  - SCHOOL REFUSAL [None]
